FAERS Safety Report 8162620-0 (Version None)
Quarter: 2012Q1

REPORT INFORMATION
  Report Type: 
  Country: None (occurrence: None)
  Receive Date: 20120103
  Receipt Date: 20111108
  Transmission Date: 20120608
  Serious: No
  Sender: FDA-Public Use
  Company Number: AE-2011-001832

PATIENT
  Age: 54 Year
  Sex: Female
  Weight: 53.978 kg

DRUGS (6)
  1. INCIVEK [Suspect]
     Dosage: (750 MG, Q 7-9H), ORAL
     Route: 048
     Dates: start: 20110916, end: 20111104
  2. PEGASYS [Concomitant]
  3. BENADRYL [Concomitant]
  4. CLOBETASOL (CLOBETASOL) [Concomitant]
  5. CLARITIN [Concomitant]
  6. RIBAVIRIN [Concomitant]

REACTIONS (4)
  - RASH MACULAR [None]
  - DIZZINESS [None]
  - DYSGEUSIA [None]
  - ANAEMIA [None]
